FAERS Safety Report 9057542 (Version 1)
Quarter: 2013Q1

REPORT INFORMATION
  Report Type: Spontaneous
  Country: US (occurrence: None)
  Receive Date: 20130204
  Receipt Date: 20130204
  Transmission Date: 20140127
  Serious: Yes (Disabling)
  Sender: FDA-Public Use
  Company Number: None

PATIENT
  Age: 32 Year
  Sex: Female
  Weight: 104.33 kg

DRUGS (1)
  1. SUCCINYLCHOLINE [Suspect]

REACTIONS (7)
  - Drug hypersensitivity [None]
  - Headache [None]
  - Muscle spasms [None]
  - Abasia [None]
  - Pain [None]
  - Muscle disorder [None]
  - Contraindication to medical treatment [None]
